FAERS Safety Report 6505069-6 (Version None)
Quarter: 2009Q4

REPORT INFORMATION
  Report Type: 
  Country: None (occurrence: None)
  Receive Date: 20091218
  Receipt Date: 20091211
  Transmission Date: 20100525
  Serious: Yes (Hospitalization, Other)
  Sender: FDA-Public Use
  Company Number: US-NOVOPROD-302005

PATIENT
  Age: 67 Year
  Sex: Female
  Weight: 155 kg

DRUGS (3)
  1. LEVEMIR [Suspect]
     Indication: TYPE 2 DIABETES MELLITUS
     Dosage: 120 IU, BID
     Route: 058
  2. HUMULIN R [Concomitant]
     Indication: TYPE 2 DIABETES MELLITUS
  3. SYMLIN [Concomitant]

REACTIONS (2)
  - BLOOD GLUCOSE INCREASED [None]
  - DYSPNOEA [None]
